FAERS Safety Report 15879142 (Version 1)
Quarter: 2019Q1

REPORT INFORMATION
  Report Type: Spontaneous
  Country: US (occurrence: US)
  Receive Date: 20190103
  Receipt Date: 20190103
  Transmission Date: 20190417
  Serious: Yes (Hospitalization)
  Sender: FDA-Public Use
  Company Number: None

PATIENT
  Age: 58 Year
  Sex: Female
  Weight: 97.1 kg

DRUGS (2)
  1. CYCLOPHOSPHAMIDE. [Suspect]
     Active Substance: CYCLOPHOSPHAMIDE
     Dates: end: 20181207
  2. DOXORUBICIN HYDROCHOLORIDE [Suspect]
     Active Substance: DOXORUBICIN HYDROCHLORIDE
     Dates: end: 20181207

REACTIONS (6)
  - Peripheral swelling [None]
  - Pain in extremity [None]
  - Anxiety disorder [None]
  - Bipolar disorder [None]
  - Energy increased [None]
  - Asthenia [None]

NARRATIVE: CASE EVENT DATE: 20181227
